FAERS Safety Report 6370025-8 (Version None)
Quarter: 2009Q3

REPORT INFORMATION
  Report Type: 
  Country: None (occurrence: None)
  Receive Date: 20090923
  Receipt Date: 20090316
  Transmission Date: 20100115
  Serious: No
  Sender: FDA-Public Use
  Company Number: US-ASTRAZENECA-2005UW02099

PATIENT
  Age: 18 Year
  Sex: Female
  Weight: 72.6 kg

DRUGS (24)
  1. SEROQUEL [Suspect]
     Indication: ATTENTION DEFICIT/HYPERACTIVITY DISORDER
     Route: 048
     Dates: start: 20040401
  2. SEROQUEL [Suspect]
     Indication: BORDERLINE PERSONALITY DISORDER
     Route: 048
     Dates: start: 20040401
  3. SEROQUEL [Suspect]
     Indication: BIPOLAR DISORDER
     Route: 048
     Dates: start: 20040401
  4. SEROQUEL [Suspect]
     Indication: SCHIZOPHRENIA
     Route: 048
     Dates: start: 20040401
  5. SEROQUEL [Suspect]
     Route: 048
  6. SEROQUEL [Suspect]
     Route: 048
  7. SEROQUEL [Suspect]
     Route: 048
  8. SEROQUEL [Suspect]
     Route: 048
  9. SEROQUEL [Suspect]
     Route: 048
  10. SEROQUEL [Suspect]
     Route: 048
  11. SEROQUEL [Suspect]
     Route: 048
  12. SEROQUEL [Suspect]
     Route: 048
  13. DEPAKOTE [Concomitant]
  14. WELLBUTRIN [Concomitant]
  15. LEXAPRO [Concomitant]
  16. RISPERDAL [Concomitant]
  17. CLONIDINE [Concomitant]
  18. ABILIFY [Concomitant]
  19. EFFEXOR XR [Concomitant]
  20. CYMBALTA [Concomitant]
  21. STRATTERA [Concomitant]
  22. LAMICTAL [Concomitant]
  23. LAMOTRIGINE [Concomitant]
  24. FLUCONAZOLE [Concomitant]

REACTIONS (8)
  - ABNORMAL BEHAVIOUR [None]
  - CONSTIPATION [None]
  - CONTUSION [None]
  - HALLUCINATION, AUDITORY [None]
  - HYPERGLYCAEMIA [None]
  - HYPOTHYROIDISM [None]
  - TIC [None]
  - WEIGHT INCREASED [None]
